FAERS Safety Report 18841154 (Version 1)
Quarter: 2021Q1

REPORT INFORMATION
  Report Type: Spontaneous
  Country: GB (occurrence: GB)
  Receive Date: 20210204
  Receipt Date: 20210204
  Transmission Date: 20210419
  Serious: Yes (Other)
  Sender: FDA-Public Use
  Company Number: GB-AUROBINDO-AUR-APL-2021-004486

PATIENT
  Age: 48 Year
  Sex: Female
  Weight: 55 kg

DRUGS (4)
  1. CO?AMOXICLAV [Suspect]
     Active Substance: AMOXICILLIN\CLAVULANATE POTASSIUM
     Indication: ILL-DEFINED DISORDER
     Dosage: UNK UNK, ONCE A DAY
     Route: 065
     Dates: start: 20210127
  2. PROCHLORPERAZINE. [Concomitant]
     Active Substance: PROCHLORPERAZINE
     Indication: ILL-DEFINED DISORDER
     Dosage: UNK (1?2 TO BE TAKEN TWICE DAILY)
     Route: 065
     Dates: start: 20201029, end: 20201031
  3. SALBUTAMOL [Concomitant]
     Active Substance: ALBUTEROL
     Indication: ILL-DEFINED DISORDER
     Dosage: UNK (INHALE 2 DOSES AS NEEDED)
     Route: 065
     Dates: start: 20181031
  4. CO?AMOXICLAV [Concomitant]
     Active Substance: AMOXICILLIN\CLAVULANATE POTASSIUM
     Indication: ILL-DEFINED DISORDER
     Dosage: UNK (TAKE ONE 3 TIMES/DAY)
     Route: 065
     Dates: start: 20201217, end: 20201224

REACTIONS (1)
  - Adverse drug reaction [Recovered/Resolved]

NARRATIVE: CASE EVENT DATE: 20210127
